FAERS Safety Report 24094689 (Version 3)
Quarter: 2024Q3

REPORT INFORMATION
  Report Type: Report from Study
  Country: US (occurrence: US)
  Receive Date: 20240716
  Receipt Date: 20240828
  Transmission Date: 20241016
  Serious: Yes (Hospitalization, Other)
  Sender: TAKEDA
  Company Number: US-TAKEDA-2022TUS066531

PATIENT
  Age: 24 Year
  Sex: Male

DRUGS (6)
  1. VONICOG ALFA [Suspect]
     Active Substance: VONICOG ALFA
     Indication: Product used for unknown indication
     Dosage: 3900 INTERNATIONAL UNIT
     Route: 042
  2. VONICOG ALFA [Suspect]
     Active Substance: VONICOG ALFA
     Dosage: 900 INTERNATIONAL UNIT
     Route: 042
  3. VONICOG ALFA [Suspect]
     Active Substance: VONICOG ALFA
     Dosage: 3900 INTERNATIONAL UNIT
     Route: 065
  4. VONICOG ALFA [Suspect]
     Active Substance: VONICOG ALFA
     Dosage: 3900 INTERNATIONAL UNIT, Q72H
     Route: 065
  5. VONICOG ALFA [Suspect]
     Active Substance: VONICOG ALFA
     Dosage: 3900 INTERNATIONAL UNIT, Q72H
     Route: 050
  6. REMICADE [Suspect]
     Active Substance: INFLIXIMAB
     Indication: Product used for unknown indication
     Dosage: UNK
     Route: 065

REACTIONS (9)
  - Vascular device infection [Unknown]
  - Device related sepsis [Unknown]
  - Seizure [Unknown]
  - Oropharyngeal blistering [Recovered/Resolved]
  - Pharyngeal contusion [Unknown]
  - Post procedural contusion [Recovered/Resolved]
  - Poor venous access [Unknown]
  - Inappropriate schedule of product administration [Unknown]
  - Extra dose administered [Recovered/Resolved]

NARRATIVE: CASE EVENT DATE: 20221016
